FAERS Safety Report 6225630-6 (Version None)
Quarter: 2009Q2

REPORT INFORMATION
  Report Type: 
  Country: None (occurrence: None)
  Receive Date: 20090612
  Receipt Date: 20090427
  Transmission Date: 20091009
  Serious: No
  Sender: FDA-Public Use
  Company Number: US-ABBOTT-09P-163-0570536-00

PATIENT
  Sex: Female
  Weight: 86.26 kg

DRUGS (1)
  1. HUMIRA [Suspect]
     Indication: JUVENILE ARTHRITIS
     Dates: start: 20090201

REACTIONS (5)
  - ARTHRALGIA [None]
  - JOINT SWELLING [None]
  - LOCALISED OEDEMA [None]
  - OEDEMA PERIPHERAL [None]
  - PAIN OF SKIN [None]
